FAERS Safety Report 8578012-6 (Version None)
Quarter: 2012Q3

REPORT INFORMATION
  Report Type: 
  Country: None (occurrence: None)
  Receive Date: 20120726
  Receipt Date: 20120716
  Transmission Date: 20120928
  Serious: Yes (Other)
  Sender: FDA-Public Use
  Company Number: DSA_58554_2012

PATIENT
  Age: 25 Year
  Sex: Female

DRUGS (4)
  1. DIPIPERON (NOT SPECIFIED) [Suspect]
     Indication: DEPRESSION
     Dosage: 40 MG, DAILY ORAL
     Route: 048
     Dates: start: 20120514, end: 20120612
  2. REMERGIL (NOT SPECIFIED) [Suspect]
     Indication: SLEEP DISORDER
     Dosage: 45 MG, DAILY ORAL
     Route: 048
     Dates: start: 20120427, end: 20120612
  3. ELONTRIL (NOT SPECIFIED) [Suspect]
     Indication: DEPRESSION
     Dosage: 150 MG,  DAILY ORAL, DF ORAL
     Route: 048
     Dates: start: 20120502, end: 20120612
  4. ELONTRIL (NOT SPECIFIED) [Suspect]
     Indication: DEPRESSION
     Dosage: 150 MG,  DAILY ORAL, DF ORAL
     Route: 048
     Dates: start: 20120101

REACTIONS (3)
  - ALANINE AMINOTRANSFERASE INCREASED [None]
  - ASPARTATE AMINOTRANSFERASE INCREASED [None]
  - BLOOD CREATINE PHOSPHOKINASE INCREASED [None]
